FAERS Safety Report 16125252 (Version 2)
Quarter: 2019Q2

REPORT INFORMATION
  Report Type: Report from Study
  Country: US (occurrence: US)
  Receive Date: 20190327
  Receipt Date: 20190626
  Transmission Date: 20190711
  Serious: Yes (Other)
  Sender: FDA-Public Use
  Company Number: PHEH2019US012922

PATIENT
  Sex: Female

DRUGS (1)
  1. COSENTYX [Suspect]
     Active Substance: SECUKINUMAB
     Indication: PSORIATIC ARTHROPATHY
     Dosage: UNK, QW (FOR 5 WEEKS THEN Q4W)
     Route: 058

REACTIONS (2)
  - Dementia Alzheimer^s type [Unknown]
  - Psoriatic arthropathy [Recovered/Resolved with Sequelae]
